FAERS Safety Report 8134389-7 (Version None)
Quarter: 2012Q1

REPORT INFORMATION
  Report Type: 
  Country: None (occurrence: None)
  Receive Date: 20120209
  Receipt Date: 20120127
  Transmission Date: 20120608
  Serious: Yes (Hospitalization)
  Sender: FDA-Public Use
  Company Number: AXC-2012-000043

PATIENT
  Age: 74 Year
  Sex: Male

DRUGS (4)
  1. URSODIOL [Suspect]
     Indication: PRODUCT USED FOR UNKNOWN INDICATION
     Dosage: ORAL
     Route: 048
  2. UFT (TEGAFUR, URACIL) UNKNOWN, UNKNOWN [Suspect]
     Indication: LUNG ADENOCARCINOMA
  3. ALLOPURINOL (ALLOPURINOL SODIUM) UNKNOWN, UNKNOWN [Suspect]
     Indication: PRODUCT USED FOR UNKNOWN INDICATION
  4. BROTIZOLAM (BROTIZOLAM) UNKNOWN, UNKNOWN [Suspect]
     Indication: PRODUCT USED FOR UNKNOWN INDICATION

REACTIONS (4)
  - INSOMNIA [None]
  - BLOOD URIC ACID INCREASED [None]
  - RHABDOMYOLYSIS [None]
  - THROMBOCYTOPENIA [None]
